FAERS Safety Report 23706197 (Version 1)
Quarter: 2024Q2

REPORT INFORMATION
  Report Type: Spontaneous
  Country: FR (occurrence: FR)
  Receive Date: 20240404
  Receipt Date: 20240404
  Transmission Date: 20240716
  Serious: Yes (Hospitalization)
  Sender: FDA-Public Use
  Company Number: None

PATIENT
  Age: 76 Year
  Sex: Male
  Weight: 100 kg

DRUGS (2)
  1. BISOPROLOL [Suspect]
     Active Substance: BISOPROLOL\BISOPROLOL FUMARATE
     Indication: Atrial fibrillation
     Dosage: 2.5 MILLIGRAM, QD (2.5 MG/D)
     Route: 048
     Dates: start: 20230812, end: 20230814
  2. ALFUZOSIN [Suspect]
     Active Substance: ALFUZOSIN
     Indication: Urinary retention
     Dosage: 10 MILLIGRAM, QD (10MG/DAY)
     Route: 048
     Dates: start: 20230809

REACTIONS (1)
  - Fall [Not Recovered/Not Resolved]

NARRATIVE: CASE EVENT DATE: 20230812
